FAERS Safety Report 20038159 (Version 9)
Quarter: 2022Q2

REPORT INFORMATION
  Report Type: Report from Study
  Country: US (occurrence: US)
  Receive Date: 20211105
  Receipt Date: 20220601
  Transmission Date: 20220721
  Serious: Yes (Hospitalization, Congenital Anomaly)
  Sender: FDA-Public Use
  Company Number: US-EXELIXIS-XL18421045774

PATIENT
  Age: 59 Year
  Sex: Female
  Weight: 62.6 kg

DRUGS (25)
  1. CABOZANTINIB [Suspect]
     Active Substance: CABOZANTINIB
     Indication: Non-small cell lung cancer metastatic
     Dosage: 40 MG, QD
     Route: 048
     Dates: start: 20210701
  2. CABOZANTINIB [Suspect]
     Active Substance: CABOZANTINIB
     Dosage: 20 MG
     Route: 048
  3. ATEZOLIZUMAB [Suspect]
     Active Substance: ATEZOLIZUMAB
     Indication: Non-small cell lung cancer metastatic
     Dosage: 1200 MG, Q3WEEKS
     Route: 042
     Dates: start: 20210701
  4. XANAX [Concomitant]
     Active Substance: ALPRAZOLAM
     Indication: Anxiety
     Dosage: 0.5 MG 1 IN 1 AS REQUIRED
     Route: 048
     Dates: start: 2006
  5. CYANOCOBALAMIN [Concomitant]
     Active Substance: CYANOCOBALAMIN
     Indication: Vitamin B12 deficiency
     Dosage: 1000 UG EVERY MORNING
     Route: 058
     Dates: start: 2000
  6. HYDROCODONE [Concomitant]
     Active Substance: HYDROCODONE
     Indication: Pain
     Dosage: 1 IN 1 AS REQUIRED
     Route: 048
     Dates: start: 20210713
  7. TYLENOL [Concomitant]
     Active Substance: ACETAMINOPHEN
     Indication: Pain
     Dosage: 1000 MG,1 IN 1 AS REQUIRED
     Route: 048
     Dates: start: 20210713
  8. ALEVE [Concomitant]
     Active Substance: NAPROXEN SODIUM
     Indication: Pain
     Dosage: 220 MG 1 IN 1 AS REQUIRED
     Route: 048
     Dates: start: 20210713
  9. VOLTAREN [Concomitant]
     Active Substance: DICLOFENAC SODIUM
     Indication: Arthralgia
     Dosage: 1 %,1 IN 1 AS REQUIRED
     Route: 061
     Dates: start: 20210925
  10. LIDODERM [Concomitant]
     Active Substance: LIDOCAINE
     Indication: Arthralgia
     Dosage: 5 %,1 IN 1 AS REQUIRED
     Route: 061
     Dates: start: 20210930
  11. COMPAZINE [Concomitant]
     Active Substance: PROCHLORPERAZINE MALEATE
     Indication: Vomiting
     Dosage: 10 MG, 1 IN 1 AS REQUIRED
     Route: 048
     Dates: start: 20211006
  12. ATIVAN [Concomitant]
     Active Substance: LORAZEPAM
     Indication: Anxiety
     Dosage: 0.5 MG 1 IN 1 AS REQUIRED
     Route: 048
     Dates: start: 20211014
  13. LIDOCAINE [Concomitant]
     Active Substance: LIDOCAINE
     Indication: Pain
     Dosage: 2 %,1 IN 1 AS REQUIRED
     Route: 061
     Dates: start: 20211014
  14. GI Cocktail [Concomitant]
     Indication: Abdominal pain
     Dosage: 30 ML 1 IN 1 AS REQUIRED
     Route: 048
     Dates: start: 20211014, end: 20211014
  15. NITAZOXANIDE [Concomitant]
     Active Substance: NITAZOXANIDE
     Indication: Product used for unknown indication
     Dosage: 500 MG, BID
     Route: 048
     Dates: start: 20211021, end: 20211023
  16. POTASSIUM CHLORIDE [Concomitant]
     Active Substance: POTASSIUM CHLORIDE
     Indication: Hypokalaemia
     Dosage: 40 UNIT NOT REPORTED,4 IN 1 D
     Route: 048
     Dates: start: 20211021, end: 20211104
  17. AMOXICILLIN [Concomitant]
     Active Substance: AMOXICILLIN
     Indication: Helicobacter infection
     Dosage: 1000 MG, BID
     Route: 048
     Dates: start: 20211026, end: 20211108
  18. CLARITHROMYCIN [Concomitant]
     Active Substance: CLARITHROMYCIN
     Indication: Helicobacter infection
     Dosage: 500 MG, QD
     Route: 048
     Dates: start: 20211026, end: 20211108
  19. METRONIDAZOLE [Concomitant]
     Active Substance: METRONIDAZOLE
     Indication: Helicobacter infection
     Dosage: 500 MG, QD
     Route: 048
     Dates: start: 20211026, end: 20211108
  20. HYDROMORPHONE [Concomitant]
     Active Substance: HYDROMORPHONE
     Indication: Abdominal pain
     Dosage: 1 UNIT NOT REPORTED,1 IN 1 AS REQUIRED
     Route: 030
     Dates: start: 20211026, end: 20211026
  21. SENNOSIDES A AND B [Concomitant]
     Active Substance: SENNOSIDES A AND B
     Indication: Constipation
     Dosage: 8.6 MG, BID
     Route: 048
     Dates: start: 20211026
  22. MIRALAX [Concomitant]
     Active Substance: POLYETHYLENE GLYCOL 3350
     Indication: Constipation
     Dosage: 17 G 1 IN 1 AS REQUIRED
     Route: 048
     Dates: start: 20211026
  23. INFLUENZA VIRUS VACCINE [Concomitant]
     Active Substance: INFLUENZA VIRUS VACCINE
     Indication: Prophylaxis
     Dosage: 0.5 ML,UNKNOWN
     Route: 030
     Dates: start: 20211028, end: 20211028
  24. DIPHENHYDRAMINE [Concomitant]
     Active Substance: DIPHENHYDRAMINE
     Indication: Abdominal pain
     Dosage: 10 ML PRN
     Route: 048
     Dates: start: 20211014, end: 20211014
  25. MAALOX ANTACID [Concomitant]
     Active Substance: ALUMINUM HYDROXIDE\DIMETHICONE\MAGNESIUM HYDROXIDE

REACTIONS (1)
  - Gastritis [Recovered/Resolved]

NARRATIVE: CASE EVENT DATE: 20211005
